FAERS Safety Report 9899990 (Version 1)
Quarter: 2014Q1

REPORT INFORMATION
  Report Type: Not Available
  Country: US (occurrence: US)
  Receive Date: 20140214
  Receipt Date: 20140214
  Transmission Date: 20141002
  Serious: No
  Sender: FDA-Public Use
  Company Number: US-VIVUS-2013V1000865

PATIENT
  Sex: Female

DRUGS (6)
  1. QSYMIA 3.75MG/23MG [Suspect]
     Indication: WEIGHT DECREASED
     Route: 048
     Dates: start: 2013
  2. QSYMIA 7.5MG/46MG [Suspect]
     Indication: WEIGHT DECREASED
     Route: 048
     Dates: start: 2013
  3. VITAMIN D-3 [Concomitant]
     Indication: VITAMIN D DECREASED
     Route: 048
  4. PROBIOTICS [Concomitant]
     Indication: PRODUCT USED FOR UNKNOWN INDICATION
  5. RED YEAST RICE [Concomitant]
     Indication: BLOOD CHOLESTEROL INCREASED
     Dosage: STARTED AROUND ONE MONTH AGO
  6. OMEGA 3 (FISH OIL) [Concomitant]
     Indication: BLOOD CHOLESTEROL INCREASED

REACTIONS (2)
  - Feeling abnormal [Not Recovered/Not Resolved]
  - Anxiety [Not Recovered/Not Resolved]
